FAERS Safety Report 17983899 (Version 1)
Quarter: 2020Q3

REPORT INFORMATION
  Report Type: Spontaneous
  Country: CN (occurrence: CN)
  Receive Date: 20200706
  Receipt Date: 20200706
  Transmission Date: 20201103
  Serious: Yes (Other)
  Sender: FDA-Public Use
  Company Number: CN-ASTRAZENECA-2020SE85152

PATIENT
  Age: 72 Year
  Sex: Male

DRUGS (2)
  1. TAGRISSO [Suspect]
     Active Substance: OSIMERTINIB
     Route: 048
     Dates: start: 20171213
  2. BEVACIZUMAB. [Concomitant]
     Active Substance: BEVACIZUMAB

REACTIONS (2)
  - Drug resistance [Unknown]
  - Malignant neoplasm progression [Unknown]
